FAERS Safety Report 6457501-4 (Version None)
Quarter: 2009Q4

REPORT INFORMATION
  Report Type: 
  Country: None (occurrence: None)
  Receive Date: 20091125
  Receipt Date: 20090730
  Transmission Date: 20100525
  Serious: Yes (Hospitalization, Other)
  Sender: FDA-Public Use
  Company Number: US-PFIZER INC-2009301609

PATIENT
  Sex: Female

DRUGS (2)
  1. NEURONTIN [Suspect]
     Dosage: UNK
     Route: 048
  2. VALIUM [Suspect]
     Dosage: UNK
     Route: 048

REACTIONS (4)
  - FEELING HOT [None]
  - JAUNDICE [None]
  - LABORATORY TEST ABNORMAL [None]
  - RASH ERYTHEMATOUS [None]
